FAERS Safety Report 17455217 (Version 1)
Quarter: 2020Q1

REPORT INFORMATION
  Report Type: Spontaneous
  Country: ES (occurrence: ES)
  Receive Date: 20200225
  Receipt Date: 20200225
  Transmission Date: 20200409
  Serious: Yes (Other)
  Sender: FDA-Public Use
  Company Number: ES-TEVA-2020-ES-1191443

PATIENT
  Age: 66 Year
  Sex: Female

DRUGS (1)
  1. CARBOPLATINO (2323A) [Suspect]
     Active Substance: CARBOPLATIN
     Indication: OVARIAN CANCER
     Dosage: AUC 5 EVERY 21 DAYS
     Route: 041
     Dates: start: 20191204, end: 20200122

REACTIONS (2)
  - Pancytopenia [Recovering/Resolving]
  - Ototoxicity [Not Recovered/Not Resolved]

NARRATIVE: CASE EVENT DATE: 20200102
